FAERS Safety Report 4308369-3 (Version None)
Quarter: 2004Q1

REPORT INFORMATION
  Report Type: 
  Country: None (occurrence: None)
  Receive Date: 20040301
  Receipt Date: 20030530
  Transmission Date: 20041129
  Serious: Yes (Hospitalization)
  Sender: FDA-Public Use
  Company Number: US-GLAXOSMITHKLINE-A0411183A

PATIENT
  Sex: Female

DRUGS (1)
  1. LOTRONEX [Suspect]
     Indication: DIVERTICULITIS
     Route: 048
     Dates: start: 20000101

REACTIONS (6)
  - ADVERSE EVENT [None]
  - COLECTOMY PARTIAL [None]
  - COLITIS [None]
  - CROHN'S DISEASE [None]
  - PLEURAL EFFUSION [None]
  - POSTOPERATIVE ILEUS [None]
